FAERS Safety Report 6322371-1 (Version None)
Quarter: 2009Q3

REPORT INFORMATION
  Report Type: 
  Country: None (occurrence: None)
  Receive Date: 20090821
  Receipt Date: 20090821
  Transmission Date: 20100115
  Serious: Yes (Hospitalization)
  Sender: FDA-Public Use
  Company Number: None

PATIENT
  Sex: Female
  Weight: 20.9 kg

DRUGS (5)
  1. DEXAMETHASONE [Suspect]
     Dosage: 135 MG
  2. METHOTREXATE [Suspect]
     Dosage: 24 MG
  3. ONCASPAR [Suspect]
     Dosage: 2000 MG
  4. VINCRISTINE SULFATE [Suspect]
     Dosage: 4.8 MG
  5. CYTARABINE [Suspect]
     Dosage: 70 MG

REACTIONS (3)
  - APPENDICITIS PERFORATED [None]
  - CONSTIPATION [None]
  - PYREXIA [None]
